FAERS Safety Report 15000217 (Version 2)
Quarter: 2018Q3

REPORT INFORMATION
  Report Type: Spontaneous
  Country: JP (occurrence: JP)
  Receive Date: 20180612
  Receipt Date: 20180731
  Transmission Date: 20181010
  Serious: Yes (Death, Hospitalization, Other)
  Sender: FDA-Public Use
  Company Number: JP-GLAXOSMITHKLINE-JP2018JPN102613

PATIENT
  Age: 74 Year
  Sex: Female
  Weight: 40 kg

DRUGS (12)
  1. FLOLAN [Suspect]
     Active Substance: EPOPROSTENOL SODIUM
     Indication: PULMONARY EMBOLISM
     Dosage: UNK
     Route: 042
     Dates: end: 20180602
  2. NEXIUM CAPSULE [Concomitant]
     Dosage: UNK, QD
  3. HALFDIGOXIN?KY TABLET [Concomitant]
  4. SPIRONOLACTONE TABLETS [Concomitant]
     Active Substance: SPIRONOLACTONE
     Dosage: UNK, QD
  5. THYRADIN S [Concomitant]
     Active Substance: LEVOTHYROXINE SODIUM
     Dosage: UNK UNK, QD
  6. TRACLEER [Concomitant]
     Active Substance: BOSENTAN
     Dosage: UNK, BID
  7. BUSCOPAN TABLETS [Concomitant]
     Indication: ABDOMINAL PAIN
     Dosage: UNK, PRN
  8. ELIQUIS [Suspect]
     Active Substance: APIXABAN
     Indication: PULMONARY EMBOLISM
     Dosage: 2.5 MG, BID
     Route: 048
     Dates: end: 20180601
  9. BISOPROLOL FUMARATE TABLET [Concomitant]
     Dosage: UNK, QD
  10. AZOSEMIDE [Concomitant]
     Active Substance: AZOSEMIDE
     Dosage: UNK, QD
  11. SAMSCA [Concomitant]
     Active Substance: TOLVAPTAN
     Dosage: UNK, QD
  12. CALFINA TABLET [Concomitant]
     Dosage: UNK, QD

REACTIONS (3)
  - Intra-abdominal haemorrhage [Fatal]
  - Haemorrhagic ascites [Fatal]
  - Ascites [Unknown]

NARRATIVE: CASE EVENT DATE: 20180601
